FAERS Safety Report 6963828-X (Version None)
Quarter: 2010Q3

REPORT INFORMATION
  Report Type: 
  Country: None (occurrence: None)
  Receive Date: 20100830
  Receipt Date: 20100813
  Transmission Date: 20110219
  Serious: Yes (Hospitalization)
  Sender: FDA-Public Use
  Company Number: 2010003425

PATIENT
  Age: 70 Year
  Sex: Female

DRUGS (8)
  1. ERLOTINIB HYDROCHLORIDE [Suspect]
     Indication: LUNG ADENOCARCINOMA
     Dosage: 150 MG QD ORAL
     Route: 048
     Dates: start: 20090317, end: 20100315
  2. GENTAMICIN SULFATE [Concomitant]
  3. LOXONIN (LOXOPROFEN SODIUM) [Concomitant]
  4. SELBEX (TEPRENONE) [Concomitant]
  5. BACTRIM [Concomitant]
  6. ALFAROL (ALFACALCIDOL) [Concomitant]
  7. LANSOPRAZOLE [Concomitant]
  8. DECADEON (DEXAMETHASONE) [Concomitant]

REACTIONS (6)
  - DECREASED APPETITE [None]
  - DIARRHOEA [None]
  - MALAISE [None]
  - PITUITARY TUMOUR BENIGN [None]
  - RASH [None]
  - VOMITING [None]
